FAERS Safety Report 9170466 (Version 2)
Quarter: 2013Q1

REPORT INFORMATION
  Report Type: Spontaneous
  Country: ES (occurrence: ES)
  Receive Date: 20130319
  Receipt Date: 20130325
  Transmission Date: 20140127
  Serious: Yes (Hospitalization)
  Sender: FDA-Public Use
  Company Number: ES-MILLENNIUM PHARMACEUTICALS, INC.-2013-02023

PATIENT
  Sex: 0

DRUGS (3)
  1. VELCADE [Suspect]
     Indication: PLASMA CELL MYELOMA
  2. MELPHALAN [Concomitant]
     Indication: PLASMA CELL MYELOMA
  3. PREDNISONE [Concomitant]
     Indication: PLASMA CELL MYELOMA

REACTIONS (2)
  - Oesophageal disorder [Recovered/Resolved]
  - Neuropathy peripheral [Recovered/Resolved]
